FAERS Safety Report 9435086 (Version 3)
Quarter: 2014Q3

REPORT INFORMATION
  Report Type: Spontaneous
  Country: US (occurrence: US)
  Receive Date: 20130801
  Receipt Date: 20140722
  Transmission Date: 20150326
  Serious: Yes (Other)
  Sender: FDA-Public Use
  Company Number: US-009507513-1307USA017095

PATIENT
  Sex: Female
  Weight: 90.7 kg

DRUGS (3)
  1. NUVARING [Suspect]
     Active Substance: ETHINYL ESTRADIOL\ETONOGESTREL
     Indication: MENSTRUATION IRREGULAR
     Dosage: UNK
     Route: 067
     Dates: start: 200707, end: 200712
  2. NUVARING [Suspect]
     Active Substance: ETHINYL ESTRADIOL\ETONOGESTREL
     Dosage: UNK
     Route: 067
     Dates: start: 200902, end: 200905
  3. NUVARING [Suspect]
     Active Substance: ETHINYL ESTRADIOL\ETONOGESTREL
     Indication: CONTRACEPTION
     Dosage: UNK
     Route: 067
     Dates: start: 200409, end: 200701

REACTIONS (26)
  - Incorrect drug administration duration [Unknown]
  - Coagulopathy [Unknown]
  - Off label use [Unknown]
  - Dysmenorrhoea [Unknown]
  - Cystitis interstitial [Unknown]
  - Vulvovaginal pain [Unknown]
  - Nocturia [Unknown]
  - Thrombosis [Unknown]
  - Surgery [Unknown]
  - Influenza [Unknown]
  - Pelvic pain [Unknown]
  - Thrombophlebitis [Unknown]
  - Deep vein thrombosis [Unknown]
  - Depression [Not Recovered/Not Resolved]
  - Acne [Unknown]
  - Bladder discomfort [Unknown]
  - Inguinal hernia [Unknown]
  - Salpingo-oophorectomy unilateral [Unknown]
  - Female sterilisation [Unknown]
  - Vaginal odour [Unknown]
  - Pelvic adhesions [Unknown]
  - Pelvic laparoscopy [Unknown]
  - Vaginal discharge [Unknown]
  - Stress urinary incontinence [Unknown]
  - Fallopian tube obstruction [Unknown]
  - Cystoscopy [Unknown]

NARRATIVE: CASE EVENT DATE: 200409
